FAERS Safety Report 9457294 (Version 1)
Quarter: 2013Q3

REPORT INFORMATION
  Report Type: Spontaneous
  Country: US (occurrence: US)
  Receive Date: 20130814
  Receipt Date: 20130814
  Transmission Date: 20140515
  Serious: Yes (Other)
  Sender: FDA-Public Use
  Company Number: PHEH2013US016903

PATIENT
  Sex: Female

DRUGS (2)
  1. GLEEVEC [Suspect]
     Indication: GASTRIC CANCER
     Dosage: UNK UKN, UNK
  2. GLEEVEC [Suspect]
     Indication: OFF LABEL USE

REACTIONS (12)
  - Peripheral paralysis [Unknown]
  - Pigmentation disorder [Unknown]
  - Skin atrophy [Unknown]
  - Hypotension [Recovering/Resolving]
  - Pain in extremity [Unknown]
  - Eye swelling [Recovered/Resolved]
  - Muscle spasms [Unknown]
  - Increased tendency to bruise [Unknown]
  - Joint swelling [Recovered/Resolved]
  - Malaise [Unknown]
  - Erythema [Unknown]
  - Skin haemorrhage [Unknown]
